FAERS Safety Report 7908060-8 (Version None)
Quarter: 2011Q4

REPORT INFORMATION
  Report Type: 
  Country: None (occurrence: None)
  Receive Date: 20111111
  Receipt Date: 20111101
  Transmission Date: 20120403
  Serious: Yes (Hospitalization)
  Sender: FDA-Public Use
  Company Number: US-BRISTOL-MYERS SQUIBB COMPANY-16107963

PATIENT
  Age: 71 Year
  Sex: Male
  Weight: 127 kg

DRUGS (30)
  1. LORAZEPAM [Concomitant]
     Dates: start: 20070101
  2. HUMULIN R [Concomitant]
     Dates: start: 20110614
  3. FOLIC ACID [Concomitant]
     Dates: start: 20110526
  4. CETUXIMAB [Suspect]
     Indication: HEAD AND NECK CANCER
     Dosage: ON DAY1 EVERY 21 DAYS 250 MG/M2 WEEKLY (1/W) LAST DOSE ON 14SEP11;INTERUPTED ON 21SEP2011
     Route: 042
     Dates: start: 20110614
  5. MINOCYCLINE HCL [Concomitant]
     Dates: start: 20110627
  6. HYZAAR [Concomitant]
     Dates: start: 20110715
  7. SIMCOR [Concomitant]
     Dates: start: 20040101
  8. ZANTAC [Concomitant]
     Dates: start: 20110613
  9. HYDROCORTISONE [Concomitant]
     Dates: start: 20110627
  10. AMIODARONE HCL [Concomitant]
     Dates: start: 20110723
  11. MAGNESIUM [Concomitant]
     Dates: start: 20110824
  12. CARBOPLATIN [Suspect]
     Indication: HEAD AND NECK CANCER
     Dosage: 1DF:5 AUC,LAST DOSE:7SEP11,RESTARTED:06OCT2011.
     Route: 042
     Dates: start: 20110614
  13. KLOR-CON [Concomitant]
     Dates: start: 20000101
  14. METFORMIN HCL [Concomitant]
     Dates: start: 20100101
  15. PROCRIT [Concomitant]
     Dates: start: 20110817
  16. VITAMIN B-12 [Concomitant]
     Dates: start: 20110526
  17. ASPIRIN [Concomitant]
     Dates: start: 20100101
  18. NEULASTA [Concomitant]
     Dates: start: 20110615
  19. MAG-OX [Concomitant]
     Dates: start: 20110628
  20. COUMADIN [Concomitant]
     Dates: start: 20110818
  21. PEMETREXED DISODIUM [Suspect]
     Indication: HEAD AND NECK CANCER
     Dosage: LAST DOSE ON 7SEP11,RESTARTED:06OCT2011.
     Route: 042
     Dates: start: 20110614
  22. CLONIDINE [Concomitant]
     Dates: start: 20080101
  23. DECADRON [Concomitant]
     Dates: start: 20110613
  24. BENADRYL [Concomitant]
     Dates: start: 20110613
  25. MAGNESIUM CHLORIDE [Concomitant]
     Dates: start: 20110628
  26. DILTIAZEM CD [Concomitant]
     Dates: start: 20110716
  27. LOPRESSOR [Concomitant]
     Dates: start: 20110719
  28. BETAPACE AF [Concomitant]
     Dates: start: 20100101
  29. ALOXI [Concomitant]
     Dates: start: 20110614
  30. CARAFATE [Concomitant]
     Dates: start: 20110802

REACTIONS (4)
  - UROSEPSIS [None]
  - EPISTAXIS [None]
  - ATRIAL FIBRILLATION [None]
  - FEBRILE NEUTROPENIA [None]
